FAERS Safety Report 12791865 (Version 1)
Quarter: 2016Q3

REPORT INFORMATION
  Report Type: Spontaneous
  Country: US (occurrence: US)
  Receive Date: 20160928
  Receipt Date: 20160928
  Transmission Date: 20161109
  Serious: Yes (Other)
  Sender: FDA-Public Use
  Company Number: None

PATIENT
  Sex: Female
  Weight: 83.25 kg

DRUGS (2)
  1. HYOSCYAMINE SULFATE .125 MG VIRTUS [Suspect]
     Active Substance: HYOSCYAMINE SULFATE
     Indication: GASTROINTESTINAL PAIN
     Dosage: ?          QUANTITY:100 TABLET(S);?
     Route: 048
     Dates: start: 20160517, end: 20160630
  2. LESARTIN [Concomitant]

REACTIONS (3)
  - Drug ineffective [None]
  - Dizziness [None]
  - Heart rate increased [None]
